FAERS Safety Report 9338368 (Version 1)
Quarter: 2013Q2

REPORT INFORMATION
  Report Type: Spontaneous
  Country: GB (occurrence: GB)
  Receive Date: 20130610
  Receipt Date: 20130610
  Transmission Date: 20140414
  Serious: Yes (Other)
  Sender: FDA-Public Use
  Company Number: GB-ELI_LILLY_AND_COMPANY-GB201305009390

PATIENT
  Sex: Female

DRUGS (1)
  1. FORSTEO [Suspect]

REACTIONS (3)
  - Osteomyelitis [Unknown]
  - Lethargy [Unknown]
  - Pruritus [Unknown]
